FAERS Safety Report 14494645 (Version 4)
Quarter: 2018Q2

REPORT INFORMATION
  Report Type: Spontaneous
  Country: JP (occurrence: JP)
  Receive Date: 20180206
  Receipt Date: 20180502
  Transmission Date: 20180711
  Serious: Yes (Death, Life-Threatening, Hospitalization, Other)
  Sender: FDA-Public Use
  Company Number: JP-009507513-1801JPN001208J

PATIENT
  Age: 73 Year
  Sex: Male
  Weight: 55 kg

DRUGS (17)
  1. URSODEOXYCHOLIC ACID [Concomitant]
     Active Substance: URSODIOL
     Dosage: UNK
     Route: 048
  2. TRAMAL [Concomitant]
     Active Substance: TRAMADOL
     Dosage: UNK
     Route: 065
  3. LANSOPRAZOLE. [Concomitant]
     Active Substance: LANSOPRAZOLE
     Dosage: UNK
     Route: 065
  4. AMLODIPINE [Concomitant]
     Active Substance: AMLODIPINE BESYLATE
     Dosage: UNK
     Route: 048
  5. ALLOPURINOL. [Concomitant]
     Active Substance: ALLOPURINOL
     Dosage: UNK
     Route: 048
  6. TAURINE [Concomitant]
     Active Substance: TAURINE
     Dosage: UNK
     Route: 048
  7. EQUA [Concomitant]
     Active Substance: VILDAGLIPTIN
     Dosage: UNK
     Route: 048
  8. KEYTRUDA [Suspect]
     Active Substance: PEMBROLIZUMAB
     Indication: LUNG SQUAMOUS CELL CARCINOMA STAGE IV
     Dosage: 200 MG, Q3W
     Route: 041
     Dates: start: 20171205, end: 20171205
  9. FAMOTIDINE. [Concomitant]
     Active Substance: FAMOTIDINE
     Dosage: UNK
     Route: 065
  10. CALONAL [Concomitant]
     Active Substance: ACETAMINOPHEN
     Dosage: UNK
     Route: 065
  11. LOXOPROFEN [Concomitant]
     Active Substance: LOXOPROFEN
     Dosage: UNK
     Route: 065
  12. ATENOLOL. [Concomitant]
     Active Substance: ATENOLOL
     Dosage: UNK
     Route: 048
  13. ALESION [Concomitant]
     Active Substance: EPINASTINE HYDROCHLORIDE
     Dosage: UNK
     Route: 048
  14. AZILVA [Concomitant]
     Active Substance: AZILSARTAN KAMEDOXOMIL
     Dosage: UNK
     Route: 048
  15. MAGMITT [Concomitant]
     Active Substance: MAGNESIUM OXIDE
     Dosage: UNK
     Route: 048
  16. METGLUCO [Concomitant]
     Active Substance: METFORMIN HYDROCHLORIDE
     Dosage: UNK
     Route: 048
  17. OXYCODONE [Concomitant]
     Active Substance: OXYCODONE
     Dosage: UNK
     Route: 048

REACTIONS (5)
  - Malignant neoplasm progression [Fatal]
  - Interstitial lung disease [Recovering/Resolving]
  - Immune thrombocytopenic purpura [Not Recovered/Not Resolved]
  - Hypercalcaemia of malignancy [Recovered/Resolved]
  - Haemoptysis [Fatal]

NARRATIVE: CASE EVENT DATE: 20171222
